FAERS Safety Report 8673452 (Version 3)
Quarter: 2014Q1

REPORT INFORMATION
  Report Type: Spontaneous
  Country: CZ (occurrence: CZ)
  Receive Date: 20120719
  Receipt Date: 20140225
  Transmission Date: 20141002
  Serious: Yes (Hospitalization, Other)
  Sender: FDA-Public Use
  Company Number: PHHY2012CZ060607

PATIENT
  Age: 42 Year
  Sex: Female

DRUGS (10)
  1. PACLITAXEL [Suspect]
     Indication: BREAST CANCER
     Dosage: 80 MG/M2, PER WEEK
     Route: 042
  2. ONDANSETRON [Suspect]
     Indication: PREMEDICATION
     Dosage: 8 MG
     Route: 042
  3. DEXAMETHASONE [Suspect]
     Indication: PREMEDICATION
     Dosage: 12 MG
     Route: 042
  4. RANITIDINE [Suspect]
     Indication: PREMEDICATION
     Dosage: 150 MG
     Route: 042
  5. CYCLOPHOSPHAMIDE [Suspect]
     Indication: BREAST CANCER
     Dosage: 600 MG/M2, TIW
     Route: 042
  6. DOCETAXEL [Suspect]
     Indication: BREAST CANCER
     Dosage: 100 MG/M2, UNK
     Route: 042
  7. BISULEPIN [Suspect]
     Indication: PREMEDICATION
     Dosage: 2 MG
     Route: 042
  8. GOSERELIN [Concomitant]
  9. TAMOXIFEN [Concomitant]
  10. DOXORUBICIN [Concomitant]
     Dosage: 60 MG/M2, UNK

REACTIONS (12)
  - Febrile neutropenia [Recovered/Resolved]
  - Toxic encephalopathy [Recovered/Resolved]
  - Transient psychosis [Recovered/Resolved]
  - Hallucination [Recovered/Resolved]
  - Hallucinations, mixed [Recovered/Resolved]
  - Suicidal ideation [Recovered/Resolved]
  - Anxiety [Recovered/Resolved]
  - Disturbance in attention [Recovered/Resolved]
  - Somatoform disorder [Recovered/Resolved]
  - Dysphemia [Recovered/Resolved]
  - Headache [Recovered/Resolved]
  - Hypoaesthesia [Recovered/Resolved]
